FAERS Safety Report 6523825-5 (Version None)
Quarter: 2009Q4

REPORT INFORMATION
  Report Type: 
  Country: None (occurrence: None)
  Receive Date: 20091230
  Receipt Date: 20091230
  Transmission Date: 20100525
  Serious: No
  Sender: FDA-Public Use
  Company Number: None

PATIENT
  Age: 76 Year
  Sex: Male

DRUGS (1)
  1. BRIMONIDINE TARTRATE [Suspect]
     Indication: GLAUCOMA
     Dosage: 1 DROPS BID EYE
     Dates: start: 20090904, end: 20091217

REACTIONS (1)
  - PRURITUS [None]
